FAERS Safety Report 5333212-3 (Version None)
Quarter: 2007Q2

REPORT INFORMATION
  Report Type: 
  Country: None (occurrence: None)
  Receive Date: 20070524
  Receipt Date: 20070514
  Transmission Date: 20071010
  Serious: Yes (Hospitalization)
  Sender: FDA-Public Use
  Company Number: PHEH2007US07398

PATIENT
  Age: 24 Year
  Sex: Female

DRUGS (16)
  1. ZELNORM [Suspect]
     Indication: IMPAIRED GASTRIC EMPTYING
     Dosage: 12 MG, TID
     Route: 048
  2. PRILOSEC [Concomitant]
     Route: 048
  3. POTASSIUM CHLORIDE [Concomitant]
     Route: 048
  4. PRENATAL VITAMINS [Concomitant]
     Route: 048
  5. VERAPAMIL [Concomitant]
     Route: 048
  6. PENICILLIN VK [Concomitant]
     Route: 048
  7. MUCINEX [Concomitant]
     Route: 048
  8. PROVIGIL [Concomitant]
     Route: 048
  9. EFFEXOR [Concomitant]
     Route: 048
  10. TOPROL-XL [Concomitant]
     Route: 048
  11. LASIX [Concomitant]
     Route: 048
  12. AMITRIPTYLINE HCL [Concomitant]
     Route: 048
  13. SPIRIVA ^PFIZER^ [Concomitant]
  14. IBUPROFEN [Concomitant]
     Route: 048
  15. IRON [Concomitant]
     Route: 048
  16. FLUCONAZOLE [Concomitant]

REACTIONS (5)
  - BLOOD POTASSIUM ABNORMAL [None]
  - DEHYDRATION [None]
  - NAUSEA [None]
  - URINARY TRACT INFECTION [None]
  - VOMITING [None]
